FAERS Safety Report 22361988 (Version 1)
Quarter: 2023Q2

REPORT INFORMATION
  Report Type: Report from Study
  Country: US (occurrence: US)
  Receive Date: 20230524
  Receipt Date: 20230524
  Transmission Date: 20230722
  Serious: No
  Sender: FDA-Public Use
  Company Number: US-INCYTE CORPORATION-2023IN004143

PATIENT

DRUGS (2)
  1. JAKAFI [Suspect]
     Active Substance: RUXOLITINIB
     Indication: Myelofibrosis
     Dosage: 10 MILLIGRAM, QD
     Route: 065
  2. JAKAFI [Suspect]
     Active Substance: RUXOLITINIB
     Dosage: 10 MILLIGRAM, BID FOR 22 MONTHS
     Route: 065

REACTIONS (8)
  - Fatigue [Unknown]
  - Decreased activity [Unknown]
  - Night sweats [Unknown]
  - Splenomegaly [Unknown]
  - Early satiety [Unknown]
  - Weight decreased [Unknown]
  - Abdominal pain [Unknown]
  - Anaemia [Unknown]
